FAERS Safety Report 7821924-9 (Version None)
Quarter: 2011Q4

REPORT INFORMATION
  Report Type: 
  Country: None (occurrence: None)
  Receive Date: 20111018
  Receipt Date: 20101222
  Transmission Date: 20120403
  Serious: No
  Sender: FDA-Public Use
  Company Number: US-ASTRAZENECA-2010SE54233

PATIENT
  Age: 52 Year
  Sex: Female
  Weight: 88.5 kg

DRUGS (6)
  1. SIMVASTATIN [Concomitant]
  2. NEXIUM [Concomitant]
  3. VITAMIN TAB [Concomitant]
  4. SYMBICORT [Suspect]
     Dosage: 160/4.5MCG ONE PUFF A DAY
     Route: 055
  5. SYMBICORT [Suspect]
     Indication: ASTHMA
     Dosage: 160/4.5MCG TWO PUFFS TWO TIMES A DAY
     Route: 055
  6. PROAIR HFA [Concomitant]

REACTIONS (2)
  - DYSPHONIA [None]
  - INAPPROPRIATE SCHEDULE OF DRUG ADMINISTRATION [None]
